FAERS Safety Report 21932833 (Version 2)
Quarter: 2023Q1

REPORT INFORMATION
  Report Type: Spontaneous
  Country: US (occurrence: US)
  Receive Date: 20230131
  Receipt Date: 20230203
  Transmission Date: 20230417
  Serious: Yes (Death, Hospitalization, Other)
  Sender: FDA-Public Use
  Company Number: US-PFIZER INC-202300042015

PATIENT
  Age: 64 Year
  Sex: Male

DRUGS (13)
  1. ONDANSETRON [Suspect]
     Active Substance: ONDANSETRON
     Dosage: UNK, [INGESTION]
  2. METOPROLOL TARTRATE [Suspect]
     Active Substance: METOPROLOL TARTRATE
     Dosage: UNK, [INGESTION]
  3. PANTOPRAZOLE [Suspect]
     Active Substance: PANTOPRAZOLE
     Dosage: UNK, [INGESTION]
  4. FUROSEMIDE [Suspect]
     Active Substance: FUROSEMIDE
     Dosage: UNK, [INGESTION]
  5. POTASSIUM CHLORIDE [Suspect]
     Active Substance: POTASSIUM CHLORIDE
     Dosage: UNK, [INGESTION]
  6. ACETAMINOPHEN [Suspect]
     Active Substance: ACETAMINOPHEN
     Dosage: UNK, [INGESTION]
  7. RIVAROXABAN [Suspect]
     Active Substance: RIVAROXABAN
     Dosage: UNK, [INGESTION]
  8. THIAMINE [Suspect]
     Active Substance: THIAMINE
     Dosage: UNK, [INGESTION]
  9. MECLIZINE HYDROCHLORIDE [Suspect]
     Active Substance: MECLIZINE HYDROCHLORIDE
     Dosage: UNK, [INGESTION]
  10. GABAPENTIN [Suspect]
     Active Substance: GABAPENTIN
     Dosage: UNK, [INGESTION]
  11. ALBUTEROL SULFATE [Suspect]
     Active Substance: ALBUTEROL SULFATE
     Dosage: UNK, [INGESTION]
  12. ATORVASTATIN [Suspect]
     Active Substance: ATORVASTATIN
     Dosage: UNK, [INGESTION]
  13. ASPIRIN [Suspect]
     Active Substance: ASPIRIN
     Dosage: UNK, [INGESTION]

REACTIONS (1)
  - Death [Fatal]

NARRATIVE: CASE EVENT DATE: 20210101
